FAERS Safety Report 4949700-5 (Version None)
Quarter: 2006Q1

REPORT INFORMATION
  Report Type: 
  Country: None (occurrence: None)
  Receive Date: 20060316
  Receipt Date: 20060228
  Transmission Date: 20060701
  Serious: Yes (Death)
  Sender: FDA-Public Use
  Company Number: PAR_0541_2006

PATIENT
  Age: 74 Year

DRUGS (1)
  1. VERAPAMIL EXTENDED-RELEASE [Suspect]
     Dosage: DF PO
     Route: 048

REACTIONS (1)
  - COMPLETED SUICIDE [None]
